FAERS Safety Report 6965798-7 (Version None)
Quarter: 2010Q3

REPORT INFORMATION
  Report Type: 
  Country: None (occurrence: None)
  Receive Date: 20100903
  Receipt Date: 20100826
  Transmission Date: 20110219
  Serious: Yes (Hospitalization)
  Sender: FDA-Public Use
  Company Number: PL-ROCHE-723846

PATIENT
  Sex: Female
  Weight: 68 kg

DRUGS (8)
  1. BLINDED TOCILIZUMAB [Suspect]
     Indication: RHEUMATOID ARTHRITIS
     Dosage: FORM: INFUSION, DOSE: BLINDED, DATE OF LAST DOSE PRIOR TO SAE: 07 JULY 2010
     Route: 042
     Dates: start: 20060808
  2. TOCILIZUMAB [Suspect]
     Indication: RHEUMATOID ARTHRITIS
     Dosage: LOADING DOSE, FORM: INFUSION (AS PER PROTOCOL)
     Route: 042
  3. METHOTREXATE [Suspect]
     Indication: RHEUMATOID ARTHRITIS
     Dosage: DOSE AND FREQUENCY: NOT REPORTED
     Route: 065
  4. PREDNISONE [Concomitant]
     Dates: start: 20100414
  5. PANTOPRAZOLE [Concomitant]
     Dates: start: 20100810
  6. POTASSIUM CHLORIDE [Concomitant]
     Dates: start: 20100819
  7. ESPUMISAN [Concomitant]
     Dates: start: 20100823
  8. ESSENTIALE FORTE [Concomitant]
     Dates: start: 20100810

REACTIONS (1)
  - LIVER DISORDER [None]
